FAERS Safety Report 12973330 (Version 2)
Quarter: 2016Q4

REPORT INFORMATION
  Report Type: Report from Study
  Country: US (occurrence: US)
  Receive Date: 20161124
  Receipt Date: 20161125
  Transmission Date: 20170207
  Serious: Yes (Other)
  Sender: FDA-Public Use
  Company Number: US-ROCHE-1858517

PATIENT
  Age: 61 Year
  Sex: Female

DRUGS (8)
  1. DORNASE ALFA [Suspect]
     Active Substance: DORNASE ALFA
     Indication: PLEURAL INFECTION
     Dosage: IN 50 ML OF 0.9% NACL
     Route: 034
  2. VANCOMYCIN [Concomitant]
     Active Substance: VANCOMYCIN
  3. ALTEPLASE [Suspect]
     Active Substance: ALTEPLASE
     Indication: PLEURAL INFECTION
     Dosage: IN 50 ML OF 0.9% NACL
     Route: 034
  4. TRAZODONE [Concomitant]
     Active Substance: TRAZODONE HYDROCHLORIDE
  5. LORAZEPAM. [Concomitant]
     Active Substance: LORAZEPAM
  6. PIPERACILLIN SODIUM/TAZOBACTAM [Concomitant]
     Active Substance: PIPERACILLIN SODIUM\TAZOBACTAM SODIUM
  7. HYDROMORPHONE [Concomitant]
     Active Substance: HYDROMORPHONE
  8. ONDANSETRON [Concomitant]
     Active Substance: ONDANSETRON

REACTIONS (1)
  - Haemothorax [Unknown]
